FAERS Safety Report 9219186 (Version 2)
Quarter: 2013Q3

REPORT INFORMATION
  Report Type: Spontaneous
  Country: US (occurrence: US)
  Receive Date: 20130409
  Receipt Date: 20130927
  Transmission Date: 20140515
  Serious: Yes (Life-Threatening, Hospitalization, Disabling)
  Sender: FDA-Public Use
  Company Number: US-BAYER-2013-044389

PATIENT
  Age: 18 Year
  Sex: Female

DRUGS (9)
  1. YAZ [Suspect]
  2. YASMIN [Suspect]
  3. OCELLA [Suspect]
  4. GIANVI [Suspect]
  5. BEYAZ [Suspect]
  6. IBUPROFEN [IBUPROFEN] [Concomitant]
     Dosage: 600 MG,
  7. KETOPROFEN [Concomitant]
     Dosage: 500 MG, TID
  8. CHLORZOXAZONE [Concomitant]
     Dosage: 500 MG,1, 3 TIMES A DAY
  9. OVCON-35 [Concomitant]

REACTIONS (8)
  - Pulmonary embolism [None]
  - Injury [None]
  - Pain [None]
  - General physical health deterioration [None]
  - Anxiety [None]
  - Anhedonia [None]
  - Emotional distress [None]
  - Pain [None]
